FAERS Safety Report 5725233-3 (Version None)
Quarter: 2008Q2

REPORT INFORMATION
  Report Type: 
  Country: None (occurrence: None)
  Receive Date: 20080501
  Receipt Date: 20080421
  Transmission Date: 20081010
  Serious: Yes (Death, Hospitalization, Other)
  Sender: FDA-Public Use
  Company Number: US-MERCK-0709USA00202

PATIENT
  Age: 82 Year
  Sex: Female
  Weight: 59 kg

DRUGS (1)
  1. FOSAMAX [Suspect]
     Indication: OSTEOPOROSIS
     Route: 048
     Dates: start: 20010101, end: 20040101

REACTIONS (5)
  - CARDIAC FAILURE CONGESTIVE [None]
  - OSTEITIS [None]
  - OSTEONECROSIS [None]
  - RENAL DISORDER [None]
  - RESPIRATORY FAILURE [None]
